FAERS Safety Report 9242137 (Version 1)
Quarter: 2013Q2

REPORT INFORMATION
  Report Type: Spontaneous
  Country: FR (occurrence: FR)
  Receive Date: 20130419
  Receipt Date: 20130419
  Transmission Date: 20140414
  Serious: Yes (Hospitalization, Other)
  Sender: FDA-Public Use
  Company Number: FR-BAYER-2013-046648

PATIENT
  Age: 92 Year
  Sex: Female

DRUGS (9)
  1. CIFLOX [Suspect]
     Indication: BRONCHIAL DISORDER
     Dosage: 400 MG, QD
     Route: 048
     Dates: start: 20130118, end: 20130124
  2. SOLUMEDROL [Suspect]
     Indication: BRONCHIAL DISORDER
     Dosage: UNK
     Dates: start: 20121229, end: 20130102
  3. SOLUMEDROL [Suspect]
     Indication: BRONCHIAL DISORDER
     Dosage: 20 MG, QD
     Route: 030
     Dates: start: 20130102, end: 20130124
  4. ROCEPHINE [Suspect]
     Indication: BRONCHIAL DISORDER
     Dosage: 1 G, QD
     Route: 030
     Dates: start: 20121229, end: 20130112
  5. AUGMENTIN [Suspect]
     Indication: BRONCHIAL DISORDER
     Dosage: 1 G, TID
     Route: 048
     Dates: start: 20121223, end: 20121229
  6. AMLOR [Concomitant]
     Indication: HYPERTENSION
     Dosage: 5 MG, QD
     Route: 048
  7. ATACAND [CANDESARTAN CILEXETIL] [Concomitant]
     Indication: HYPERTENSION
     Dosage: 8 MG, QD
     Route: 048
  8. PLAVIX [Concomitant]
     Indication: MYOCARDIAL ISCHAEMIA
     Dosage: 1 DF, QD
     Route: 048
  9. EUPRESSYL [Concomitant]
     Indication: HYPERTENSION
     Dosage: 30 MG, BID
     Route: 048

REACTIONS (2)
  - Renal failure acute [Recovering/Resolving]
  - Renal tubular disorder [Recovering/Resolving]
